FAERS Safety Report 20280013 (Version 2)
Quarter: 2023Q2

REPORT INFORMATION
  Report Type: Report from Study
  Country: DE (occurrence: DE)
  Receive Date: 20220103
  Receipt Date: 20230616
  Transmission Date: 20230722
  Serious: Yes (Hospitalization)
  Sender: FDA-Public Use
  Company Number: DE-002147023-NVSC2021DE059273

PATIENT
  Sex: Female

DRUGS (7)
  1. METHOTREXATE [Suspect]
     Active Substance: METHOTREXATE
     Indication: Psoriatic arthropathy
     Dosage: 10 MILLIGRAM, QW
     Route: 065
     Dates: start: 20130101
  2. ACEMETACIN [Suspect]
     Active Substance: ACEMETACIN
     Indication: Psoriatic arthropathy
     Dosage: 90 MILLIGRAM, QW
     Route: 065
     Dates: start: 20200415, end: 20201015
  3. ACEMETACIN [Suspect]
     Active Substance: ACEMETACIN
     Dosage: 60 MILLIGRAM
     Route: 065
     Dates: start: 20170601, end: 20200306
  4. COSENTYX [Suspect]
     Active Substance: SECUKINUMAB
     Indication: Psoriatic arthropathy
     Dosage: 150 MILLIGRAM, MONTHLY
     Route: 065
     Dates: start: 20191209
  5. ETORICOXIB [Concomitant]
     Active Substance: ETORICOXIB
     Indication: Product used for unknown indication
     Dosage: 60 MILLIGRAM
     Route: 065
     Dates: start: 20210415
  6. ETORICOXIB [Concomitant]
     Active Substance: ETORICOXIB
     Dosage: 90 MILLIGRAM
     Route: 065
     Dates: start: 20210113
  7. ETORICOXIB [Concomitant]
     Active Substance: ETORICOXIB
     Dosage: 240 MILLIGRAM
     Route: 065
     Dates: start: 20200307, end: 20200415

REACTIONS (15)
  - Fibromyalgia [Recovered/Resolved]
  - Pain [Recovered/Resolved]
  - Rotator cuff syndrome [Unknown]
  - Hiatus hernia [Unknown]
  - Gastrooesophageal reflux disease [Unknown]
  - Influenza like illness [Unknown]
  - Duodenitis [Unknown]
  - Hip deformity [Unknown]
  - COVID-19 [Unknown]
  - Gastrointestinal infection [Unknown]
  - Osteoarthritis [Unknown]
  - Nasopharyngitis [Unknown]
  - Eye inflammation [Unknown]
  - Cough [Unknown]
  - Diarrhoea [Unknown]

NARRATIVE: CASE EVENT DATE: 20200430
